FAERS Safety Report 11766278 (Version 1)
Quarter: 2015Q4

REPORT INFORMATION
  Report Type: Spontaneous
  Country: GB (occurrence: GB)
  Receive Date: 20151123
  Receipt Date: 20151123
  Transmission Date: 20160304
  Serious: Yes (Other)
  Sender: FDA-Public Use
  Company Number: GB-TEVA-609310ACC

PATIENT
  Age: 50 Year
  Sex: Female
  Weight: 74 kg

DRUGS (8)
  1. SERETIDE [Concomitant]
     Active Substance: FLUTICASONE FUROATE\SALMETEROL XINAFOATE
     Indication: ASTHMA
     Dosage: 4 DOSAGE FORMS DAILY;
  2. OMEPRAZOLE. [Concomitant]
     Active Substance: OMEPRAZOLE
     Indication: DYSPEPSIA
     Route: 048
     Dates: start: 20120905
  3. COCODAMOL [Concomitant]
     Active Substance: ACETAMINOPHEN\CODEINE PHOSPHATE
     Indication: PAIN
     Dosage: 8 DOSAGE FORMS DAILY; 30/500MG
     Route: 048
     Dates: start: 20140820
  4. NIFEDIPINE. [Suspect]
     Active Substance: NIFEDIPINE
     Indication: RAYNAUD^S PHENOMENON
     Dosage: 30 MILLIGRAM DAILY;
     Route: 048
     Dates: start: 20151009, end: 20151009
  5. DIAZEPAM. [Concomitant]
     Active Substance: DIAZEPAM
     Indication: INSOMNIA
     Dosage: 2 MILLIGRAM DAILY; AT NIGHT
     Route: 048
     Dates: start: 20120802
  6. BISOPROLOL [Concomitant]
     Active Substance: BISOPROLOL
     Indication: MYOCARDIAL ISCHAEMIA
     Dosage: 2.5 MILLIGRAM DAILY;
     Route: 048
     Dates: start: 20150907
  7. VENTOLIN [Concomitant]
     Active Substance: ALBUTEROL SULFATE
     Indication: ASTHMA
     Dosage: TWO PUFFS FOUR TIMES A DAY AS REQUIRED
  8. LYRICA [Concomitant]
     Active Substance: PREGABALIN
     Indication: NEURALGIA
     Dosage: 300 MILLIGRAM DAILY;
     Route: 048
     Dates: start: 20150619

REACTIONS (3)
  - Tachycardia [Recovered/Resolved]
  - Dyspnoea [Recovered/Resolved]
  - Flushing [Recovered/Resolved]

NARRATIVE: CASE EVENT DATE: 20151009
